FAERS Safety Report 9099100 (Version 5)
Quarter: 2015Q2

REPORT INFORMATION
  Report Type: Spontaneous
  Country: US (occurrence: US)
  Receive Date: 20130213
  Receipt Date: 20150618
  Transmission Date: 20150821
  Serious: Yes (Other)
  Sender: FDA-Public Use
  Company Number: US-009507513-1302USA004368

PATIENT
  Age: 21 Year
  Sex: Female
  Weight: 61.22 kg

DRUGS (3)
  1. NEXPLANON [Suspect]
     Active Substance: ETONOGESTREL
     Indication: CONTRACEPTION
     Dosage: 1 DF, 3 YEARS
     Route: 059
     Dates: start: 20121004
  2. VISTARIL [Concomitant]
     Active Substance: HYDROXYZINE PAMOATE
  3. TOPAMAX [Concomitant]
     Active Substance: TOPIRAMATE

REACTIONS (9)
  - Bipolar disorder [Unknown]
  - Ovarian cyst [Unknown]
  - Pregnancy with implant contraceptive [Recovered/Resolved]
  - Fallopian tube cyst [Not Recovered/Not Resolved]
  - Epilepsy [Unknown]
  - Metrorrhagia [Not Recovered/Not Resolved]
  - Abortion spontaneous [Not Recovered/Not Resolved]
  - Unintended pregnancy [Recovered/Resolved]
  - Menstruation normal [Recovered/Resolved]

NARRATIVE: CASE EVENT DATE: 20121014
